FAERS Safety Report 10284017 (Version 1)
Quarter: 2014Q3

REPORT INFORMATION
  Report Type: Spontaneous
  Country: DE (occurrence: None)
  Receive Date: 20140703
  Receipt Date: 20140703
  Transmission Date: 20150326
  Serious: Yes (Death)
  Sender: FDA-Public Use
  Company Number: 2415141

PATIENT
  Age: 54 Year
  Sex: Female

DRUGS (2)
  1. PROPOFOL. [Suspect]
     Active Substance: PROPOFOL
     Dosage: (NOT OTHERWISE SPECIFIED)
     Route: 042
  2. MIRTAZAPINE. [Concomitant]
     Active Substance: MIRTAZAPINE

REACTIONS (7)
  - Self-medication [None]
  - Intentional product misuse [None]
  - Needle track marks [None]
  - Intentional self-injury [None]
  - Pulmonary oedema [None]
  - Completed suicide [None]
  - Multi-organ disorder [None]
